FAERS Safety Report 21264879 (Version 1)
Quarter: 2022Q3

REPORT INFORMATION
  Report Type: Spontaneous
  Country: US (occurrence: None)
  Receive Date: 20220826
  Receipt Date: 20220826
  Transmission Date: 20221027
  Serious: Yes (unspecified)
  Sender: FDA-Public Use
  Company Number: None

PATIENT
  Age: 76 Year
  Sex: Male
  Weight: 50 kg

DRUGS (1)
  1. HEPARIN [Suspect]
     Active Substance: HEPARIN SODIUM
     Indication: Deep vein thrombosis
     Dates: start: 20220630, end: 20220707

REACTIONS (4)
  - Abdominal pain [None]
  - Food intolerance [None]
  - Heparin-induced thrombocytopenia [None]
  - Therapy cessation [None]

NARRATIVE: CASE EVENT DATE: 20220707
